FAERS Safety Report 24705863 (Version 1)
Quarter: 2024Q4

REPORT INFORMATION
  Report Type: Spontaneous
  Country: CN (occurrence: CN)
  Receive Date: 20241206
  Receipt Date: 20241206
  Transmission Date: 20250115
  Serious: Yes (Other)
  Sender: PFIZER
  Company Number: CN-PFIZER INC-PV202400155940

PATIENT
  Age: 27 Year
  Sex: Female
  Weight: 66 kg

DRUGS (8)
  1. LINEZOLID [Suspect]
     Active Substance: LINEZOLID
     Indication: Sepsis
     Dosage: 0.6 G, 2X/DAY
  2. IMIPENEM [Suspect]
     Active Substance: IMIPENEM
     Indication: Sepsis
     Dosage: 0.5 G, 3X/DAY
  3. TRETINOIN [Concomitant]
     Active Substance: TRETINOIN
     Dosage: UNK
  4. HYDROXYUREA [Concomitant]
     Active Substance: HYDROXYUREA
     Dosage: UNK
  5. OMACETAXINE MEPESUCCINATE [Concomitant]
     Active Substance: OMACETAXINE MEPESUCCINATE
     Dosage: UNK
  6. CYTARABINE [Concomitant]
     Active Substance: CYTARABINE
     Dosage: UNK
  7. ARSENIC TRIOXIDE [Concomitant]
     Active Substance: ARSENIC TRIOXIDE
     Dosage: UNK
  8. MOXIFLOXACIN [Concomitant]
     Active Substance: MOXIFLOXACIN
     Indication: Anti-infective therapy
     Dosage: UNK

REACTIONS (2)
  - Drug ineffective [Unknown]
  - Antibiotic level below therapeutic [Unknown]
